FAERS Safety Report 15763613 (Version 1)
Quarter: 2018Q4

REPORT INFORMATION
  Report Type: Spontaneous
  Country: JP (occurrence: JP)
  Receive Date: 20181227
  Receipt Date: 20181227
  Transmission Date: 20190205
  Serious: Yes (Other)
  Sender: FDA-Public Use
  Company Number: JP-AMGEN-JPNSP2018185568

PATIENT

DRUGS (1)
  1. GRAN [Suspect]
     Active Substance: FILGRASTIM
     Indication: NON-HODGKIN^S LYMPHOMA
     Dosage: 400 UG/M2, DAY1-8
     Route: 058

REACTIONS (9)
  - Insomnia [Unknown]
  - Hypokalaemia [Unknown]
  - Diarrhoea [Unknown]
  - Hyperhidrosis [Unknown]
  - Back pain [Unknown]
  - Nausea [Unknown]
  - Arthralgia [Unknown]
  - Blood lactate dehydrogenase increased [Unknown]
  - Headache [Unknown]
